FAERS Safety Report 17429869 (Version 1)
Quarter: 2020Q1

REPORT INFORMATION
  Report Type: Spontaneous
  Country: US (occurrence: US)
  Receive Date: 20200218
  Receipt Date: 20200218
  Transmission Date: 20200409
  Serious: No
  Sender: FDA-Public Use
  Company Number: US-PFIZER INC-2017421629

PATIENT
  Age: 82 Year
  Sex: Male

DRUGS (27)
  1. TYLENOL [Concomitant]
     Active Substance: ACETAMINOPHEN
     Dosage: 500 MG, 2X/DAY
     Route: 048
     Dates: start: 20160913
  2. LYRICA [Suspect]
     Active Substance: PREGABALIN
     Indication: DIABETIC NEPHROPATHY
     Dosage: 150 MG, 2X/DAY
     Route: 048
     Dates: start: 20170906
  3. FERROUS SULFATE. [Concomitant]
     Active Substance: FERROUS SULFATE
     Dosage: 325 MG, DAILY [WITH BREAKFAST]
     Route: 048
  4. SYNTHROID [Concomitant]
     Active Substance: LEVOTHYROXINE SODIUM
     Dosage: 50 UG, 1X/DAY[EVERY MORNING BEFORE BREAKFAST]
     Route: 048
     Dates: start: 20170725
  5. COZAAR [Concomitant]
     Active Substance: LOSARTAN POTASSIUM
     Dosage: 25 MG, DAILY
     Route: 048
     Dates: start: 20170228
  6. GLUCOTROL [Concomitant]
     Active Substance: GLIPIZIDE
     Dosage: 2.5 MG, DAILY [WITH BREAKFAST]
     Route: 048
     Dates: start: 20170228
  7. PRILOSEC [Concomitant]
     Active Substance: OMEPRAZOLE MAGNESIUM
     Dosage: 40 MG, 2X/DAY
     Route: 048
     Dates: start: 20161128
  8. K-DUR [Concomitant]
     Active Substance: POTASSIUM CHLORIDE
     Dosage: 20 MEQ, 2X/DAY
     Route: 048
     Dates: start: 20161014
  9. ASPIRIN. [Concomitant]
     Active Substance: ASPIRIN
     Dosage: 162 MG, DAILY (81 MG EC TABLET; SIG: TAKE 2 TABLET)
     Route: 048
     Dates: start: 20160908
  10. FOLIC ACID W/VITAMIN B COMPLEX [Concomitant]
     Dosage: 1 DF, DAILY
     Route: 048
  11. VITAMIN D3 [Concomitant]
     Active Substance: CHOLECALCIFEROL
     Dosage: 2000 IU, DAILY
     Route: 048
  12. PAXIL [Concomitant]
     Active Substance: PAROXETINE HYDROCHLORIDE
     Dosage: 20 MG, DAILY
     Route: 048
     Dates: start: 20161222
  13. COLACE [Concomitant]
     Active Substance: DOCUSATE SODIUM
     Dosage: 100 MG, 1X/DAY [NIGHTLY]
     Route: 048
     Dates: start: 20160913
  14. LOPRESSOR [Concomitant]
     Active Substance: METOPROLOL TARTRATE
     Dosage: 50 MG, 2X/DAY
     Route: 048
     Dates: start: 20161026
  15. NITROSTAT [Concomitant]
     Active Substance: NITROGLYCERIN
     Indication: CHEST PAIN
     Dosage: 0.4 MG, AS NEEDED [PLACE 1 TABLET UNDER THE TONGUE EVERY 5 MINUTES AS NEEDED]
     Route: 060
     Dates: start: 20160716
  16. LYRICA [Suspect]
     Active Substance: PREGABALIN
     Indication: TYPE 2 DIABETES MELLITUS
     Dosage: 150 MG, 2X/DAY (1AM-1PM)
     Route: 048
     Dates: start: 20190123
  17. LIPITOR [Concomitant]
     Active Substance: ATORVASTATIN CALCIUM
     Dosage: 80 MG, 1X/DAY (NIGHTLY)
     Route: 048
     Dates: start: 20170905
  18. LASIX [Concomitant]
     Active Substance: FUROSEMIDE
     Dosage: 20 MG, 1X/DAY (TAKE 1/2 TAB EACH MORNING)
     Dates: start: 20170228
  19. HYDROCORTISONE. [Concomitant]
     Active Substance: HYDROCORTISONE
     Indication: RASH
     Dosage: UNK, AS NEEDED [APPLY TOPICALLY NIGHTLY. USE FOR 2 WEEKS, FOR RASH ON FACE AND SCALP AS NEEDED]
     Route: 061
     Dates: start: 20160908
  20. CENTRUM SILVER [Concomitant]
     Active Substance: MINERALS\VITAMINS
     Dosage: 1 DF, DAILY
     Route: 048
  21. LIDOCAINE. [Concomitant]
     Active Substance: LIDOCAINE
     Dosage: 5 ML, UNK [ONCE]
     Dates: start: 20170925, end: 20170925
  22. LYRICA [Suspect]
     Active Substance: PREGABALIN
     Indication: NEUROPATHY PERIPHERAL
     Dosage: 200 MG, 2X/DAY [1 AM-1 PM]
     Route: 048
  23. ZYLOPRIM [Concomitant]
     Active Substance: ALLOPURINOL
     Dosage: 300 MG, DAILY
     Route: 048
     Dates: start: 20170228
  24. LOTRIMIN [Concomitant]
     Active Substance: CLOTRIMAZOLE
     Dosage: UNK, 2X/DAY (APPLY TWICE DAILY TO FEET, TOES AND BETWEEN TOES. USE FOR 4 WEEKS)
     Route: 061
     Dates: start: 20161014
  25. COLCHICINE. [Concomitant]
     Active Substance: COLCHICINE
     Indication: GOUT
     Dosage: 0.6 MG, AS NEEDED [TWICE DAILY]
     Route: 048
     Dates: start: 20160810
  26. LEVOTHROID [Concomitant]
     Active Substance: LEVOTHYROXINE SODIUM
     Dosage: 50 UG, 1X/DAY [EVERY MORNING BEFORE BREAKFAST]
     Route: 048
     Dates: start: 20170725
  27. DEPO-MEDROL [Concomitant]
     Active Substance: METHYLPREDNISOLONE ACETATE
     Dosage: 1 ML, UNK [40 MG/ML INJECTION 40 MG; SIG; INJECT 1 ML INTO THE ARTICULAR SPACE ONCE]
     Route: 014
     Dates: start: 20170925, end: 20170925

REACTIONS (1)
  - Hypoacusis [Unknown]
